FAERS Safety Report 6719436-9 (Version None)
Quarter: 2010Q2

REPORT INFORMATION
  Report Type: 
  Country: None (occurrence: None)
  Receive Date: 20100510
  Receipt Date: 20100510
  Transmission Date: 20101027
  Serious: No
  Sender: FDA-Public Use
  Company Number: None

PATIENT
  Age: 63 Year
  Sex: Female
  Weight: 150.5942 kg

DRUGS (2)
  1. DEXTROSE 50% [Suspect]
     Indication: HYPOGLYCAEMIA
     Dosage: 15 ML IV PUSH
     Route: 042
     Dates: start: 20100506
  2. IV INFUSING WITH NORMAL SALINE [Concomitant]

REACTIONS (3)
  - HYPOAESTHESIA FACIAL [None]
  - INFUSION RELATED REACTION [None]
  - SKIN DISCOLOURATION [None]
